APPROVED DRUG PRODUCT: IBUPROFEN
Active Ingredient: IBUPROFEN
Strength: 200MG
Dosage Form/Route: CAPSULE;ORAL
Application: A074782 | Product #001
Applicant: CONTRACT PHARMACAL CORP
Approved: Jul 6, 1998 | RLD: No | RS: No | Type: DISCN